FAERS Safety Report 7746155-2 (Version None)
Quarter: 2011Q3

REPORT INFORMATION
  Report Type: 
  Country: None (occurrence: None)
  Receive Date: 20110913
  Receipt Date: 20110906
  Transmission Date: 20111222
  Serious: Yes (Life-Threatening, Hospitalization, Other)
  Sender: FDA-Public Use
  Company Number: GB-SANOFI-AVENTIS-2011SA058018

PATIENT
  Age: 50 Year
  Sex: Female

DRUGS (5)
  1. RIFAMPICIN [Suspect]
     Indication: PULMONARY TUBERCULOSIS
     Route: 065
     Dates: start: 20110623, end: 20110817
  2. ISONIAZID [Concomitant]
     Route: 065
     Dates: start: 20110623, end: 20110817
  3. ETHAMBUTOL HYDROCHLORIDE [Concomitant]
     Route: 065
     Dates: start: 20110623, end: 20110817
  4. PYRIDOXINE HCL [Concomitant]
     Route: 065
     Dates: start: 20110623, end: 20110817
  5. MOXIFLOXACIN [Concomitant]
     Route: 065
     Dates: start: 20110803, end: 20110817

REACTIONS (5)
  - MYALGIA [None]
  - ERYTHEMA [None]
  - PYREXIA [None]
  - HEADACHE [None]
  - SYSTEMIC INFLAMMATORY RESPONSE SYNDROME [None]
